FAERS Safety Report 21952171 (Version 2)
Quarter: 2023Q1

REPORT INFORMATION
  Report Type: Spontaneous
  Country: US (occurrence: US)
  Receive Date: 20230203
  Receipt Date: 20230213
  Transmission Date: 20230418
  Serious: No
  Sender: FDA-Public Use
  Company Number: US-BRISTOL-MYERS SQUIBB COMPANY-2023-016543

PATIENT
  Age: 52 Year
  Sex: Female

DRUGS (1)
  1. LENALIDOMIDE [Suspect]
     Active Substance: LENALIDOMIDE
     Indication: Plasma cell myeloma
     Dosage: FREQUENCY: DAYS 1-14 EVERY 21 DAYS
     Route: 048
     Dates: start: 20230126

REACTIONS (5)
  - Pollakiuria [Unknown]
  - Headache [Unknown]
  - Off label use [Unknown]
  - Vision blurred [Unknown]
  - Flatulence [Unknown]
